FAERS Safety Report 22391316 (Version 1)
Quarter: 2023Q2

REPORT INFORMATION
  Report Type: Report from Study
  Country: EG (occurrence: EG)
  Receive Date: 20230601
  Receipt Date: 20230601
  Transmission Date: 20230721
  Serious: Yes (Other)
  Sender: FDA-Public Use
  Company Number: EG-002147023-NVSC2022EG291124

PATIENT
  Age: 12 Year
  Sex: Male

DRUGS (5)
  1. OMNITROPE [Suspect]
     Active Substance: SOMATROPIN
     Indication: Growth hormone deficiency
     Dosage: 1.5 MG, QD
     Route: 058
     Dates: start: 20220727, end: 20221218
  2. OMNITROPE [Suspect]
     Active Substance: SOMATROPIN
     Dosage: 1.6 MG, QD
     Route: 058
  3. OMNITROPE [Suspect]
     Active Substance: SOMATROPIN
     Dosage: 1.7 MG, QD (5 MG/1.5ML ),  DUE TO NORMAL GROWTH
     Route: 058
     Dates: start: 20221218
  4. MOSEDIN [Concomitant]
     Indication: Rhinitis allergic
     Dosage: 1 DOSAGE FORM, QD (START DATE: SINCE DISCOVERING RECURRENT NASAL ALLERGY)
     Route: 048
  5. SALINE [Concomitant]
     Active Substance: SODIUM CHLORIDE
     Indication: Rhinitis allergic
     Dosage: 2 BUFFS, QD(START DATE: SINCE DISCOVERING RECURRENT NASAL ALLERGY)
     Route: 065

REACTIONS (7)
  - Gastrointestinal toxicity [Recovered/Resolved]
  - Poor quality device used [Not Recovered/Not Resolved]
  - Product availability issue [Recovered/Resolved]
  - Needle issue [Not Recovered/Not Resolved]
  - Nasopharyngitis [Recovered/Resolved]
  - Cough [Recovered/Resolved]
  - Hypersensitivity [Recovered/Resolved]

NARRATIVE: CASE EVENT DATE: 20220701
